FAERS Safety Report 26000437 (Version 1)
Quarter: 2025Q4

REPORT INFORMATION
  Report Type: Spontaneous
  Country: PR (occurrence: PR)
  Receive Date: 20251105
  Receipt Date: 20251105
  Transmission Date: 20260118
  Serious: No
  Sender: ANI
  Company Number: PR-ANIPHARMA-2025-PR-000065

PATIENT
  Age: 32 Year
  Sex: Male
  Weight: 68.95 kg

DRUGS (1)
  1. CORTICOTROPIN [Suspect]
     Active Substance: CORTICOTROPIN
     Indication: Product used for unknown indication
     Dosage: 80 SUBCUTANEOUS UNITS OF TREATMENT DAILY FOR 10 DAYS
     Route: 058
     Dates: start: 20250315

REACTIONS (1)
  - Urticaria [Unknown]

NARRATIVE: CASE EVENT DATE: 20250301
